FAERS Safety Report 19517555 (Version 2)
Quarter: 2024Q1

REPORT INFORMATION
  Report Type: Report from Study
  Country: US (occurrence: US)
  Receive Date: 20210712
  Receipt Date: 20240328
  Transmission Date: 20240410
  Serious: Yes (Death, Other)
  Sender: FDA-Public Use
  Company Number: US-ACADIA PHARMACEUTICALS INC.-ACA-2021-PIM-002289

PATIENT
  Age: 86 Year
  Sex: Male
  Weight: 68 kg

DRUGS (3)
  1. NUPLAZID [Suspect]
     Active Substance: PIMAVANSERIN TARTRATE
     Indication: Parkinson^s disease
     Dosage: 34 MILLIGRAM, QD
     Route: 065
     Dates: start: 20210524, end: 20210611
  2. NUPLAZID [Suspect]
     Active Substance: PIMAVANSERIN TARTRATE
     Dosage: 68 MILLIGRAM, QD
     Route: 065
     Dates: start: 20210612, end: 20210612
  3. NUPLAZID [Suspect]
     Active Substance: PIMAVANSERIN TARTRATE
     Dosage: 34 MILLIGRAM, QD
     Route: 065
     Dates: start: 20210616

REACTIONS (9)
  - Death [Fatal]
  - Blood pressure decreased [Unknown]
  - Pulse absent [Unknown]
  - Fatigue [Unknown]
  - Product dose omission issue [Recovered/Resolved]
  - Dizziness [Unknown]
  - Confusional state [Unknown]
  - Somnolence [Unknown]
  - Accidental overdose [Recovered/Resolved]

NARRATIVE: CASE EVENT DATE: 20210601
